FAERS Safety Report 9522210 (Version 2)
Quarter: 2013Q3

REPORT INFORMATION
  Report Type: Spontaneous
  Country: US (occurrence: None)
  Receive Date: 20130911
  Receipt Date: 20130918
  Transmission Date: 20140515
  Serious: Yes (Life-Threatening, Hospitalization)
  Sender: FDA-Public Use
  Company Number: AUR-APL-2013-07521

PATIENT
  Age: 66 Year
  Sex: Male

DRUGS (2)
  1. LEVETIRACETAM (LEVETIRACETAM) [Suspect]
     Indication: CONVULSION
     Dosage: 500 MG  1 IN 1 D
  2. INSULIN (INSULIN) [Suspect]
     Indication: PRODUCT USED FOR UNKNOWN INDICATION

REACTIONS (8)
  - Major depression [None]
  - Suicidal behaviour [None]
  - Convulsion [None]
  - Blood creatine phosphokinase increased [None]
  - Hyperglycaemia [None]
  - Hypocalcaemia [None]
  - Overdose [None]
  - Treatment noncompliance [None]
